FAERS Safety Report 6335644-3 (Version None)
Quarter: 2009Q3

REPORT INFORMATION
  Report Type: 
  Country: None (occurrence: None)
  Receive Date: 20090826
  Receipt Date: 20090817
  Transmission Date: 20100115
  Serious: Yes (Hospitalization)
  Sender: FDA-Public Use
  Company Number: GXKR2009AU09295

PATIENT
  Age: 48 Year
  Sex: Male

DRUGS (5)
  1. TOPIRAMATE [Suspect]
     Indication: EPILEPSY
     Dosage: 100 MG, BID
  2. VALPROIC ACID [Suspect]
     Indication: EPILEPSY
     Dosage: 700 MG, BID
  3. POSACONAZOLE [Suspect]
     Indication: ASPERGILLOMA
     Dosage: 200 MG, QID
  4. AMPHOTERICIN B [Concomitant]
  5. VORICONAZOLE [Concomitant]

REACTIONS (11)
  - CATATONIA [None]
  - COMMUNICATION DISORDER [None]
  - DECREASED APPETITE [None]
  - DRUG INTERACTION [None]
  - DRUG LEVEL INCREASED [None]
  - DRUG TOXICITY [None]
  - ENCEPHALOPATHY [None]
  - HYPOPHAGIA [None]
  - SOMNOLENCE [None]
  - STUPOR [None]
  - WEIGHT DECREASED [None]
